FAERS Safety Report 8129326-5 (Version None)
Quarter: 2012Q1

REPORT INFORMATION
  Report Type: 
  Country: None (occurrence: None)
  Receive Date: 20120210
  Receipt Date: 20120207
  Transmission Date: 20120608
  Serious: Yes (Death, Hospitalization, Other)
  Sender: FDA-Public Use
  Company Number: PHHY2012JP003779

PATIENT
  Age: 58 Year
  Sex: Male

DRUGS (3)
  1. FLUOROURACIL [Suspect]
     Indication: LYMPHANGITIS
  2. LEVOLEUCOVORIN CALCIUM [Suspect]
     Indication: LYMPHANGITIS
     Route: 042
  3. OXALIPLATIN [Suspect]
     Indication: LYMPHANGITIS

REACTIONS (6)
  - DEATH [None]
  - RESPIRATORY DISORDER [None]
  - DYSPNOEA [None]
  - HEPATIC LESION [None]
  - NEUROPATHY PERIPHERAL [None]
  - DIARRHOEA [None]
